FAERS Safety Report 18776132 (Version 2)
Quarter: 2023Q2

REPORT INFORMATION
  Report Type: Spontaneous
  Country: PL (occurrence: PL)
  Receive Date: 20210122
  Receipt Date: 20230627
  Transmission Date: 20230722
  Serious: Yes (Other)
  Sender: FDA-Public Use
  Company Number: None

PATIENT
  Age: 89 Year
  Sex: Male

DRUGS (3)
  1. LEUPROLIDE ACETATE [Suspect]
     Active Substance: LEUPROLIDE ACETATE
     Indication: Prostate cancer
     Dosage: 45 MG, EVERY 6 MONTHS
     Route: 058
  2. ENZALUTAMIDE [Suspect]
     Active Substance: ENZALUTAMIDE
     Indication: Prostate cancer
     Dosage: 160 MG, QD
     Route: 065
  3. FLUTAMIDE [Concomitant]
     Active Substance: FLUTAMIDE
     Indication: Hormone therapy
     Dosage: 250 MG, Q8H
     Route: 065

REACTIONS (6)
  - Prostatic specific antigen increased [Unknown]
  - Vitamin D deficiency [Unknown]
  - Malignant neoplasm progression [Unknown]
  - Fall [Recovered/Resolved]
  - Traumatic fracture [Recovered/Resolved]
  - Humerus fracture [Recovered/Resolved]

NARRATIVE: CASE EVENT DATE: 20190201
